FAERS Safety Report 13415006 (Version 2)
Quarter: 2020Q4

REPORT INFORMATION
  Report Type: Spontaneous
  Country: US (occurrence: US)
  Receive Date: 20170406
  Receipt Date: 20201210
  Transmission Date: 20210113
  Serious: Yes (Hospitalization, Disabling, Other)
  Sender: FDA-Public Use
  Company Number: US-SA-2017SA056901

PATIENT

DRUGS (4)
  1. LANTUS [Suspect]
     Active Substance: INSULIN GLARGINE
     Indication: TYPE 1 DIABETES MELLITUS
     Dosage: UNK UNK,HS
     Route: 065
  2. LANTUS [Suspect]
     Active Substance: INSULIN GLARGINE
     Dosage: 30IU WHEN HIS WHEN HIS BLOOD SUGAR WAS UP THIS MORNING
     Route: 065
  3. LANTUS [Suspect]
     Active Substance: INSULIN GLARGINE
     Dosage: 20 IU(NORMAL DOSE)
     Route: 065
  4. APIDRA [Suspect]
     Active Substance: INSULIN GLULISINE
     Indication: TYPE 1 DIABETES MELLITUS
     Dosage: UNK UNK,UNK
     Route: 065

REACTIONS (9)
  - Diabetes mellitus inadequate control [Recovering/Resolving]
  - Hyperhidrosis [Unknown]
  - Liquid product physical issue [Unknown]
  - Chronic kidney disease [Unknown]
  - Blood glucose increased [Unknown]
  - Hip arthroplasty [Unknown]
  - Extra dose administered [Unknown]
  - Intentional product use issue [Unknown]
  - Pancreatitis chronic [Unknown]

NARRATIVE: CASE EVENT DATE: 20170328
